FAERS Safety Report 9822628 (Version 1)
Quarter: 2014Q1

REPORT INFORMATION
  Report Type: Spontaneous
  Country: US (occurrence: US)
  Receive Date: 20140116
  Receipt Date: 20140116
  Transmission Date: 20141002
  Serious: Yes (Life-Threatening, Other)
  Sender: FDA-Public Use
  Company Number: US-ROCHE-1333985

PATIENT
  Sex: Female

DRUGS (5)
  1. XOLAIR [Suspect]
     Indication: PRODUCT USED FOR UNKNOWN INDICATION
     Route: 065
  2. BUDESONIDE [Suspect]
     Indication: PRODUCT USED FOR UNKNOWN INDICATION
     Route: 065
  3. PATANASE [Concomitant]
  4. CYTOMEL [Concomitant]
  5. ALBUTEROL NEBULIZER [Concomitant]

REACTIONS (5)
  - Apparent death [Unknown]
  - H1N1 influenza [Unknown]
  - Arthralgia [Unknown]
  - Coeliac disease [Unknown]
  - Drug intolerance [Unknown]
